FAERS Safety Report 18116761 (Version 1)
Quarter: 2020Q3

REPORT INFORMATION
  Report Type: Spontaneous
  Country: US (occurrence: US)
  Receive Date: 20200806
  Receipt Date: 20200806
  Transmission Date: 20201103
  Serious: Yes (Other)
  Sender: FDA-Public Use
  Company Number: US-STRIDES ARCOLAB LIMITED-2020SP005022

PATIENT
  Age: 4 Decade
  Sex: Female

DRUGS (3)
  1. GABAPENTIN. [Suspect]
     Active Substance: GABAPENTIN
     Indication: PAIN
     Dosage: 300 MILLIGRAM, BID AS NEEDED
     Route: 065
  2. GABAPENTIN. [Suspect]
     Active Substance: GABAPENTIN
     Indication: LEIOMYOMA
     Dosage: UNK, DOSE INCREASED
     Route: 065
  3. GABAPENTIN. [Suspect]
     Active Substance: GABAPENTIN
     Dosage: DOSE INCREASED TO 300MG (MORNING) AND 600MG (EVENING)
     Route: 065

REACTIONS (4)
  - Impaired work ability [Unknown]
  - Pain [Unknown]
  - Off label use [Unknown]
  - Somnolence [Unknown]
